FAERS Safety Report 18510987 (Version 2)
Quarter: 2021Q2

REPORT INFORMATION
  Report Type: Spontaneous
  Country: US (occurrence: US)
  Receive Date: 20201117
  Receipt Date: 20210510
  Transmission Date: 20210717
  Serious: No
  Sender: FDA-Public Use
  Company Number: US-PFIZER INC-2020447459

PATIENT
  Age: 81 Year
  Sex: Female

DRUGS (2)
  1. BOSULIF [Suspect]
     Active Substance: BOSUTINIB MONOHYDRATE
     Indication: CHRONIC MYELOID LEUKAEMIA
     Dosage: 300 MG, 1X/DAY (IN PM WITHOUT FOOD)
     Route: 048
     Dates: start: 20140318
  2. BOSULIF [Suspect]
     Active Substance: BOSUTINIB MONOHYDRATE
     Indication: PHILADELPHIA CHROMOSOME POSITIVE
     Dosage: 300 MG, DAILY
     Dates: start: 20140318

REACTIONS (6)
  - Wrong technique in product usage process [Unknown]
  - Gastrointestinal disorder [Unknown]
  - COVID-19 [Unknown]
  - SARS-CoV-2 antibody test positive [Unknown]
  - Dry skin [Unknown]
  - Product dose omission issue [Unknown]

NARRATIVE: CASE EVENT DATE: 2020
